FAERS Safety Report 9438904 (Version 2)
Quarter: 2013Q4

REPORT INFORMATION
  Report Type: Spontaneous
  Country: FR (occurrence: FR)
  Receive Date: 20130802
  Receipt Date: 20131022
  Transmission Date: 20140711
  Serious: Yes (Disabling, Other)
  Sender: FDA-Public Use
  Company Number: FR-BRISTOL-MYERS SQUIBB COMPANY-19138338

PATIENT
  Age: 76 Year
  Sex: Female

DRUGS (8)
  1. TAXOL INJ [Suspect]
     Indication: OVARIAN CANCER
     Dosage: 17JAN2007-30APR2007?JAN2013-ONG
     Route: 042
     Dates: start: 20070117
  2. AVASTIN [Suspect]
     Indication: OVARIAN CANCER
     Route: 042
  3. PROPRANOLOL [Concomitant]
  4. AMLOR [Concomitant]
  5. PARIET [Concomitant]
  6. KARDEGIC [Concomitant]
  7. AMOXICILLINE [Concomitant]
  8. CARBOPLATIN [Concomitant]
     Dosage: NO OF COURSES 6
     Dates: start: 20070117, end: 20070430

REACTIONS (1)
  - Macular oedema [Recovered/Resolved]
